FAERS Safety Report 6454706-3 (Version None)
Quarter: 2009Q4

REPORT INFORMATION
  Report Type: 
  Country: None (occurrence: None)
  Receive Date: 20091118
  Receipt Date: 20091103
  Transmission Date: 20100525
  Serious: Yes (Hospitalization)
  Sender: FDA-Public Use
  Company Number: 8039640

PATIENT
  Age: 62 Year
  Sex: Female
  Weight: 62 kg

DRUGS (9)
  1. CERTOLIZUMAB PEGOL [Suspect]
     Indication: RHEUMATOID ARTHRITIS
     Dosage: 400 MG 1/2W SC
     Route: 058
     Dates: start: 20060419, end: 20071211
  2. CERTOLIZUMAB PEGOL [Suspect]
     Indication: RHEUMATOID ARTHRITIS
     Dosage: 200 MG 1/2W SC
     Route: 058
     Dates: start: 20071227
  3. METHOTREXATE [Concomitant]
  4. METHYLPREDNISOLON /00049601/ [Concomitant]
  5. NIMESULID [Concomitant]
  6. ACIDUM FOLICUM [Concomitant]
  7. DORZOLAMID [Concomitant]
  8. ATENOLOL [Concomitant]
  9. OMEPRAZOLE [Concomitant]

REACTIONS (9)
  - ARTHRITIS BACTERIAL [None]
  - HAEMOGLOBIN INCREASED [None]
  - JOINT ANKYLOSIS [None]
  - JOINT CREPITATION [None]
  - JOINT DISLOCATION [None]
  - OSTEOPENIA [None]
  - OSTEOPOROSIS [None]
  - PLATELET COUNT INCREASED [None]
  - RED BLOOD CELL COUNT DECREASED [None]
